FAERS Safety Report 20243467 (Version 1)
Quarter: 2021Q4

REPORT INFORMATION
  Report Type: Spontaneous
  Country: CA (occurrence: CA)
  Receive Date: 20211228
  Receipt Date: 20211228
  Transmission Date: 20220303
  Serious: Yes (Death, Hospitalization, Other)
  Sender: FDA-Public Use
  Company Number: CA-SUN PHARMACEUTICAL INDUSTRIES LTD-2021R1-321845

PATIENT
  Age: 22 Year
  Sex: Female

DRUGS (4)
  1. OLANZAPINE [Suspect]
     Active Substance: OLANZAPINE
     Indication: Electrocardiogram QT prolonged
     Dosage: UNK (5 MG)
     Route: 065
  2. ONDANSETRON [Suspect]
     Active Substance: ONDANSETRON
     Indication: Electrocardiogram QT prolonged
     Dosage: UNK (8 MG)
     Route: 065
  3. HALOPERIDOL [Suspect]
     Active Substance: HALOPERIDOL
     Indication: Electrocardiogram QT prolonged
     Dosage: UNK
     Route: 065
  4. DIMENHYDRINATE [Concomitant]
     Active Substance: DIMENHYDRINATE
     Indication: Product used for unknown indication
     Dosage: UNK (50MG)
     Route: 065

REACTIONS (4)
  - Brain injury [Fatal]
  - Cardiac arrest [Fatal]
  - Ventricular fibrillation [Unknown]
  - Torsade de pointes [Unknown]
